FAERS Safety Report 20599780 (Version 1)
Quarter: 2022Q1

REPORT INFORMATION
  Report Type: Spontaneous
  Country: US (occurrence: US)
  Receive Date: 20220316
  Receipt Date: 20220316
  Transmission Date: 20220423
  Serious: Yes (Other)
  Sender: FDA-Public Use
  Company Number: US-NOVOPROD-898318

PATIENT
  Sex: Male

DRUGS (2)
  1. LEVEMIR [Suspect]
     Active Substance: INSULIN DETEMIR
     Indication: Type 2 diabetes mellitus
     Dosage: 35 IU, QD
     Route: 065
  2. LEVEMIR [Suspect]
     Active Substance: INSULIN DETEMIR
     Dosage: GRADUALLY INCREASE OF DOSE
     Route: 065

REACTIONS (2)
  - Diabetic retinopathy [Unknown]
  - Condition aggravated [Unknown]
